FAERS Safety Report 8516748-3 (Version None)
Quarter: 2012Q3

REPORT INFORMATION
  Report Type: 
  Country: None (occurrence: None)
  Receive Date: 20120718
  Receipt Date: 20120706
  Transmission Date: 20120928
  Serious: Yes (Hospitalization)
  Sender: FDA-Public Use
  Company Number: US-PERRIGO-12US005821

PATIENT
  Age: 14 Year
  Sex: Male

DRUGS (1)
  1. MESALAMINE [Suspect]
     Indication: COLITIS ULCERATIVE
     Dosage: 1.5 GRAMS, QD
     Route: 065

REACTIONS (3)
  - NAUSEA [None]
  - TUBULOINTERSTITIAL NEPHRITIS [None]
  - FATIGUE [None]
